FAERS Safety Report 18942201 (Version 4)
Quarter: 2021Q3

REPORT INFORMATION
  Report Type: Report from Study
  Country: CA (occurrence: CA)
  Receive Date: 20210225
  Receipt Date: 20210917
  Transmission Date: 20211014
  Serious: Yes (Hospitalization, Other)
  Sender: FDA-Public Use
  Company Number: CA-OTSUKA-2021_006215

PATIENT
  Sex: Male

DRUGS (1)
  1. CEDAZURIDINE AND DECITABINE [Suspect]
     Active Substance: CEDAZURIDINE\DECITABINE
     Indication: MYELODYSPLASTIC SYNDROME
     Dosage: UNK
     Route: 065
     Dates: start: 20210111

REACTIONS (9)
  - Syncope [Unknown]
  - Haematemesis [Unknown]
  - Cerebral thrombosis [Unknown]
  - Nausea [Unknown]
  - Treatment noncompliance [Unknown]
  - Platelet count decreased [Unknown]
  - Epistaxis [Unknown]
  - Hypoacusis [Unknown]
  - Dizziness [Unknown]
